FAERS Safety Report 4667539-5 (Version None)
Quarter: 2005Q2

REPORT INFORMATION
  Report Type: 
  Country: None (occurrence: None)
  Receive Date: 20050520
  Receipt Date: 20050511
  Transmission Date: 20051028
  Serious: Yes (Hospitalization, Other)
  Sender: FDA-Public Use
  Company Number: TW-JNJFOC-20050504378

PATIENT
  Age: 67 Year
  Sex: Female

DRUGS (5)
  1. CISAPRIDE [Interacting]
     Indication: GASTROINTESTINAL DISORDER
  2. CATHARANTHUS ROSEUS [Suspect]
  3. ESSENTIAL PHOSPHOLIPIDS [Concomitant]
  4. NAPROXEN [Concomitant]
  5. ANTACID TAB [Concomitant]

REACTIONS (12)
  - BACTERAEMIA [None]
  - DIZZINESS [None]
  - DRUG INTERACTION [None]
  - GASTROINTESTINAL DISORDER [None]
  - GENERAL PHYSICAL HEALTH DETERIORATION [None]
  - HEPATIC FUNCTION ABNORMAL [None]
  - MOUTH ULCERATION [None]
  - PANCYTOPENIA [None]
  - PHARYNGOLARYNGEAL PAIN [None]
  - RENAL IMPAIRMENT [None]
  - URINARY TRACT INFECTION [None]
  - VOMITING [None]
